FAERS Safety Report 5483946-5 (Version None)
Quarter: 2007Q4

REPORT INFORMATION
  Report Type: 
  Country: None (occurrence: None)
  Receive Date: 20071010
  Receipt Date: 20071010
  Transmission Date: 20080405
  Serious: Yes (Life-Threatening, Other)
  Sender: FDA-Public Use
  Company Number: None

PATIENT
  Age: 31 Year
  Sex: Female
  Weight: 108.8633 kg

DRUGS (1)
  1. CHANTIX [Suspect]
     Indication: SMOKING CESSATION THERAPY
     Dosage: BID PO
     Route: 048
     Dates: start: 20070630, end: 20070820

REACTIONS (3)
  - DEPRESSION [None]
  - DIVORCED [None]
  - IMPAIRED WORK ABILITY [None]
